FAERS Safety Report 10156486 (Version 1)
Quarter: 2014Q2

REPORT INFORMATION
  Report Type: Spontaneous
  Country: US (occurrence: None)
  Receive Date: 20140506
  Receipt Date: 20140506
  Transmission Date: 20141212
  Serious: No
  Sender: FDA-Public Use
  Company Number: None

PATIENT
  Age: 71 Year
  Sex: Female
  Weight: 72.12 kg

DRUGS (6)
  1. BONIVA (BANDRONATE SODIUM) [Suspect]
     Indication: OSTEOPOROSIS
     Dates: start: 20131213
  2. CALCIUM [Concomitant]
  3. FISH OIL [Concomitant]
  4. VITAMIN D3 [Concomitant]
  5. MULTIVITAMIN [Concomitant]
  6. SIMVASTATIN 5MG. [Concomitant]

REACTIONS (14)
  - Chills [None]
  - Swelling face [None]
  - Skin exfoliation [None]
  - Erythema [None]
  - Rash macular [None]
  - Neck pain [None]
  - Oedema peripheral [None]
  - Musculoskeletal pain [None]
  - Visual acuity reduced [None]
  - Nausea [None]
  - Pain in extremity [None]
  - Oral pain [None]
  - Gingival pain [None]
  - Pain in extremity [None]
